FAERS Safety Report 18816888 (Version 1)
Quarter: 2021Q1

REPORT INFORMATION
  Report Type: Other
  Country: US (occurrence: US)
  Receive Date: 20210201
  Receipt Date: 20210201
  Transmission Date: 20210419
  Serious: Yes (Hospitalization)
  Sender: FDA-Public Use
  Company Number: US-ROCHE-2760680

PATIENT
  Age: 60 Year
  Sex: Female

DRUGS (2)
  1. VEMURAFENIB. [Suspect]
     Active Substance: VEMURAFENIB
     Indication: ERDHEIM-CHESTER DISEASE
     Route: 065
  2. COBIMETINIB. [Suspect]
     Active Substance: COBIMETINIB
     Indication: ERDHEIM-CHESTER DISEASE
     Route: 065

REACTIONS (1)
  - Pancreatitis acute [Recovered/Resolved]
